FAERS Safety Report 8775069 (Version 2)
Quarter: 2012Q4

REPORT INFORMATION
  Report Type: Report from Study
  Country: CA (occurrence: CA)
  Receive Date: 20120908
  Receipt Date: 20120912
  Transmission Date: 20130627
  Serious: Yes (Death)
  Sender: FDA-Public Use
  Company Number: PHHY2012CA078079

PATIENT
  Sex: Female
  Weight: 37 kg

DRUGS (20)
  1. ACLASTA/ZOLEDRONATE [Suspect]
     Indication: OSTEOPOROSIS
     Dosage: 5 mg, UNK
     Route: 042
     Dates: start: 20091006
  2. ACLASTA/ZOLEDRONATE [Suspect]
     Dosage: 5 mg, UNK
     Route: 042
     Dates: start: 20101028
  3. ACLASTA [Suspect]
     Dosage: 5 mg, UNK
     Route: 042
     Dates: start: 20111116
  4. VITAMIN D [Concomitant]
     Dosage: 800 IU, UNK
     Dates: start: 20090331
  5. CALCIUM [Concomitant]
     Dosage: 1200 ug, UNK
     Dates: start: 19990331
  6. FENTANYL [Concomitant]
     Dosage: 25 ug, UNK
  7. MICARDIS [Concomitant]
     Dosage: 80 mg, UNK
  8. ALPRAZOLAM [Concomitant]
     Dosage: 0.25 mg, UNK
  9. FERROUS SULFATE [Concomitant]
     Dosage: 300 mg, UNK
  10. TIAZAC [Concomitant]
     Dosage: 180 mg, UNK
  11. DETROL [Concomitant]
     Dosage: 4 mg, UNK
  12. SYNTHROID [Concomitant]
     Dosage: 0.25 mg, UNK
  13. AMLODIPINE [Concomitant]
     Dosage: 5 mg, UNK
  14. ASA [Concomitant]
  15. NOVO-DOCUSATE [Concomitant]
     Dosage: 100 mg, UNK
  16. QUININE [Concomitant]
  17. DOXEPIN [Concomitant]
     Dosage: 25 mg, UNK
  18. CRESTOR [Concomitant]
     Dosage: 10 mg, UNK
  19. PANTOPRAZOLE [Concomitant]
     Dosage: 40 mg, UNK
  20. PLAVIX [Concomitant]
     Dosage: 75 mg, UNK

REACTIONS (3)
  - Neoplasm malignant [Fatal]
  - Arteriosclerosis [Fatal]
  - Death [Fatal]
